FAERS Safety Report 4785383-5 (Version None)
Quarter: 2005Q3

REPORT INFORMATION
  Report Type: 
  Country: None (occurrence: None)
  Receive Date: 20050929
  Receipt Date: 20050916
  Transmission Date: 20060218
  Serious: Yes (Other)
  Sender: FDA-Public Use
  Company Number: 2005122758

PATIENT
  Sex: Female
  Weight: 69 kg

DRUGS (6)
  1. TOLTERODINE TARTRATE [Suspect]
     Indication: HYPERTONIC BLADDER
     Dosage: 4 MG (2 MG, 2 IN 1 D), ORAL
     Route: 048
     Dates: start: 20050822, end: 20050826
  2. PARADEX (DEXTROPROPOXYPHENE HYDROCHLORIDE, PARACETAMOL) [Concomitant]
  3. KLIOVANCE (ESTRADIOL, NORETHISTERONE ACETATE) [Concomitant]
  4. BRICANYL [Concomitant]
  5. DICLOFENAC SODIUM [Concomitant]
  6. OXIS (FORMOTEROL) [Concomitant]

REACTIONS (10)
  - DYSPNOEA [None]
  - ERYTHEMA [None]
  - FACE OEDEMA [None]
  - GENERALISED OEDEMA [None]
  - OEDEMA [None]
  - OEDEMA PERIPHERAL [None]
  - POLYURIA [None]
  - RESPIRATORY DISORDER [None]
  - THIRST [None]
  - WHEEZING [None]
